FAERS Safety Report 16385248 (Version 1)
Quarter: 2019Q2

REPORT INFORMATION
  Report Type: Spontaneous
  Country: US (occurrence: US)
  Receive Date: 20190603
  Receipt Date: 20190603
  Transmission Date: 20190711
  Serious: Yes (Hospitalization)
  Sender: FDA-Public Use
  Company Number: US-TEVA-2019-US-1055734

PATIENT
  Age: 9 Year
  Sex: Male

DRUGS (23)
  1. PREDNISOLONE. [Suspect]
     Active Substance: PREDNISOLONE
     Indication: NEPHROTIC SYNDROME
     Route: 048
  2. LORAZEPAM. [Suspect]
     Active Substance: LORAZEPAM
     Dosage: ON DAY 4 DOSE INCREASED TO 3MG THREE TIMES/DAY
     Route: 042
  3. AMLODIPINE [Concomitant]
     Active Substance: AMLODIPINE BESYLATE
     Indication: NEPHROTIC SYNDROME
     Route: 065
  4. CICLOSPORIN [Suspect]
     Active Substance: CYCLOSPORINE
     Dosage: 100MG QHS
     Route: 065
  5. LORAZEPAM. [Suspect]
     Active Substance: LORAZEPAM
     Indication: CATATONIA
     Dosage: INITIALLY LORAZEPAM CHALLENGE TEST WAS PERFORMED ON HOSPITAL DAY 3 AND AFTER TRANSIENT RESOLUTION...
     Route: 042
  6. LISINOPRIL. [Concomitant]
     Active Substance: LISINOPRIL
     Indication: NEPHROTIC SYNDROME
     Route: 065
  7. PREDNISOLONE. [Suspect]
     Active Substance: PREDNISOLONE
     Dosage: STARTED ON HOSPITAL DAY 20
     Route: 048
  8. METHYLPREDNISOLONE. [Suspect]
     Active Substance: METHYLPREDNISOLONE
     Indication: NEPHROTIC SYNDROME
     Route: 042
  9. LORAZEPAM. [Suspect]
     Active Substance: LORAZEPAM
     Dosage: STARTED ON HOSPITAL DAY 18
     Route: 048
  10. CEFTRIAXONE. [Concomitant]
     Active Substance: CEFTRIAXONE
     Indication: MENINGITIS
     Route: 065
  11. MYCOPHENOLATE MOFETIL. [Concomitant]
     Active Substance: MYCOPHENOLATE MOFETIL
     Indication: NEPHROTIC SYNDROME
     Dosage: STARTED ON HOSPITAL DAY 5
     Route: 042
  12. CICLOSPORIN [Suspect]
     Active Substance: CYCLOSPORINE
     Indication: NEPHROTIC SYNDROME
     Dosage: 125 MG QAM
     Route: 065
  13. PROPOFOL. [Suspect]
     Active Substance: PROPOFOL
     Indication: INDUCTION OF ANAESTHESIA
     Dosage: RECEIVED ON HOSPITAL DAY 3 IN PREPARATION FOR A LUMBAR PUNCTURE FOR FURTHER WORK-UP
     Route: 041
  14. ACYCLOVIR. [Concomitant]
     Active Substance: ACYCLOVIR
     Indication: MENINGITIS
     Route: 065
  15. VANCOMYCIN [Concomitant]
     Active Substance: VANCOMYCIN
     Indication: MENINGITIS
     Route: 065
  16. VANCOMYCIN [Concomitant]
     Active Substance: VANCOMYCIN
     Indication: EVIDENCE BASED TREATMENT
  17. METHYLPREDNISOLONE. [Suspect]
     Active Substance: METHYLPREDNISOLONE
     Dosage: DOSE DECREASED TO 30MG/DAY ON HOSPITAL DAY 14
     Route: 042
  18. METHYLPREDNISOLONE. [Suspect]
     Active Substance: METHYLPREDNISOLONE
     Dosage: DOSE DECREASED TO 20MG/DAY ON HOSPITAL DAY 18
     Route: 042
  19. MYCOPHENOLATE-MOFETIL [Concomitant]
     Active Substance: MYCOPHENOLATE MOFETIL
     Dosage: ON HOSPITAL DAY 15
     Route: 048
  20. ACYCLOVIR. [Concomitant]
     Active Substance: ACYCLOVIR
     Indication: EVIDENCE BASED TREATMENT
  21. MYCOPHENOLATE-MOFETIL [Concomitant]
     Active Substance: MYCOPHENOLATE MOFETIL
     Indication: NEPHROTIC SYNDROME
     Dosage: STARTED ON DAY 12
     Route: 048
  22. LORAZEPAM. [Suspect]
     Active Substance: LORAZEPAM
     Dosage: 3MG THREE TIMES/DAY STARTED ON HOSPITAL DAY 10; DOSE DECREASED TO 3MG FROM 3.75MG DUE TO CONCERN ...
     Route: 048
  23. CEFTRIAXONE. [Concomitant]
     Active Substance: CEFTRIAXONE
     Indication: EVIDENCE BASED TREATMENT

REACTIONS (6)
  - Neurotoxicity [Recovered/Resolved]
  - Hypervigilance [Recovered/Resolved]
  - Psychomotor retardation [Recovered/Resolved]
  - Paradoxical drug reaction [Recovered/Resolved]
  - Sedation [Recovered/Resolved]
  - Catatonia [Recovered/Resolved]
